FAERS Safety Report 8397046-8 (Version None)
Quarter: 2012Q2

REPORT INFORMATION
  Report Type: 
  Country: None (occurrence: None)
  Receive Date: 20120530
  Receipt Date: 20120523
  Transmission Date: 20120825
  Serious: Yes (Hospitalization, Other)
  Sender: FDA-Public Use
  Company Number: US-ABBOTT-12P-163-0936963-00

PATIENT
  Age: 82 Year
  Sex: Female

DRUGS (12)
  1. LISINOPRIL [Concomitant]
     Indication: HYPERTENSION
     Dosage: 10 MG DAILY
  2. BENADRYL [Concomitant]
     Indication: HOT FLUSH
     Dosage: 25 MG DAILY TAKEN WITH FEMARA
  3. CRANBERRY [Concomitant]
     Indication: PRODUCT USED FOR UNKNOWN INDICATION
     Dosage: DAILY
  4. VESICARE [Concomitant]
     Indication: PRODUCT USED FOR UNKNOWN INDICATION
  5. VITAMIN B COMPLEX CAP [Concomitant]
     Indication: PRODUCT USED FOR UNKNOWN INDICATION
     Dosage: DAILY
  6. NEXIUM [Concomitant]
     Indication: GASTROOESOPHAGEAL REFLUX DISEASE
     Dosage: 40 MG DAILY
  7. GALAPENTIN [Concomitant]
     Indication: PRODUCT USED FOR UNKNOWN INDICATION
     Dosage: 100 MG DAILY
  8. DIAZEPAM [Concomitant]
     Indication: ANXIETY
  9. SYNTHROID [Concomitant]
     Indication: HYPOTHYROIDISM
     Dosage: 0.05 MG DAILY
  10. HUMIRA [Suspect]
     Indication: CROHN'S DISEASE
     Dates: start: 20110710
  11. FEMARA [Concomitant]
     Indication: BREAST CANCER
     Dosage: 2.5 MG DAILY
  12. VIT E [Concomitant]
     Indication: PRODUCT USED FOR UNKNOWN INDICATION

REACTIONS (8)
  - CLOSTRIDIAL INFECTION [None]
  - PHARYNGEAL ULCERATION [None]
  - INAPPROPRIATE SCHEDULE OF DRUG ADMINISTRATION [None]
  - HIP FRACTURE [None]
  - FALL [None]
  - URINARY RETENTION [None]
  - PHARYNGITIS [None]
  - PAIN [None]
